FAERS Safety Report 7767810-4 (Version None)
Quarter: 2011Q3

REPORT INFORMATION
  Report Type: 
  Country: None (occurrence: None)
  Receive Date: 20110922
  Receipt Date: 20110610
  Transmission Date: 20111222
  Serious: No
  Sender: FDA-Public Use
  Company Number: US-ASTRAZENECA-2011SE35736

PATIENT
  Age: 54 Year
  Sex: Female
  Weight: 90.7 kg

DRUGS (12)
  1. SEROQUEL [Suspect]
     Indication: BIPOLAR DISORDER
     Route: 048
  2. SEROQUEL [Suspect]
     Route: 048
  3. SEROQUEL [Suspect]
     Indication: SCHIZOPHRENIA
     Route: 048
  4. ZOLOFT [Concomitant]
  5. GABAPENTIN [Concomitant]
  6. TRAMADOL HCL [Concomitant]
  7. SEROQUEL [Suspect]
     Dosage: 400 MG, HALF TABLET (200 MG DOSE)
     Route: 048
  8. SEROQUEL [Suspect]
     Dosage: 400 MG, HALF TABLET (200 MG DOSE)
     Route: 048
  9. SEROQUEL [Suspect]
     Route: 048
  10. VISTARIL [Concomitant]
  11. MOBIC [Concomitant]
  12. FUROSEMIDE [Concomitant]

REACTIONS (4)
  - THERAPEUTIC RESPONSE UNEXPECTED [None]
  - NIGHTMARE [None]
  - WRONG TECHNIQUE IN DRUG USAGE PROCESS [None]
  - PANIC REACTION [None]
